FAERS Safety Report 5669136-1 (Version None)
Quarter: 2008Q1

REPORT INFORMATION
  Report Type: 
  Country: None (occurrence: None)
  Receive Date: 20080317
  Receipt Date: 20080303
  Transmission Date: 20080703
  Serious: Yes (Disabling)
  Sender: FDA-Public Use
  Company Number: GB-AMGEN-US268280

PATIENT
  Sex: Female
  Weight: 64 kg

DRUGS (9)
  1. ENBREL [Suspect]
     Indication: PSORIATIC ARTHROPATHY
     Route: 058
     Dates: start: 20030101, end: 20070501
  2. LANSOPRAZOLE [Concomitant]
     Indication: DYSPEPSIA
     Route: 048
     Dates: start: 20060701
  3. LANSOPRAZOLE [Concomitant]
     Indication: PROPHYLAXIS
  4. TRAMADOL HCL [Concomitant]
     Indication: PAIN
     Dosage: 50MG, FREQUENCY UNKNOWN
     Route: 048
  5. DICLOFENAC [Concomitant]
     Indication: PAIN
     Route: 048
     Dates: start: 19991201
  6. BUPRENORPHINE HCL [Concomitant]
     Indication: PAIN
     Route: 062
     Dates: start: 20071001
  7. METHOTREXATE [Concomitant]
     Dosage: 17.5MG WEEKLY
     Route: 058
     Dates: start: 20000501
  8. METHOTREXATE [Concomitant]
     Dosage: 25MG WEEKLY
  9. FOLIC ACID [Concomitant]
     Route: 048
     Dates: start: 20040401

REACTIONS (4)
  - INFECTION [None]
  - NASAL DISCOMFORT [None]
  - PARANASAL SINUS HYPERSECRETION [None]
  - SINUSITIS [None]
